FAERS Safety Report 6858040-9 (Version None)
Quarter: 2010Q3

REPORT INFORMATION
  Report Type: 
  Country: None (occurrence: None)
  Receive Date: 20100719
  Receipt Date: 20080404
  Transmission Date: 20110219
  Serious: No
  Sender: FDA-Public Use
  Company Number: US-PFIZER INC-2008008989

PATIENT
  Sex: Female
  Weight: 37.7 kg

DRUGS (2)
  1. CHANTIX [Suspect]
     Indication: SMOKING CESSATION THERAPY
     Dosage: INTERVAL: EVERY DAY
     Dates: start: 20080106
  2. METFORMIN HCL [Concomitant]

REACTIONS (3)
  - EYE DISORDER [None]
  - SOMNOLENCE [None]
  - VISION BLURRED [None]
